FAERS Safety Report 5747618-1 (Version None)
Quarter: 2008Q2

REPORT INFORMATION
  Report Type: 
  Country: None (occurrence: None)
  Receive Date: 20080523
  Receipt Date: 20080513
  Transmission Date: 20081010
  Serious: Yes (Other)
  Sender: FDA-Public Use
  Company Number: IT-AMGEN-US281249

PATIENT
  Age: 45 Year
  Sex: Female

DRUGS (1)
  1. ENBREL [Suspect]
     Indication: RHEUMATOID ARTHRITIS
     Dosage: UNSPECIFIED
     Dates: start: 20040401

REACTIONS (3)
  - EPILEPSY [None]
  - GLOMERULONEPHRITIS [None]
  - HYPERTENSIVE ENCEPHALOPATHY [None]
